FAERS Safety Report 25100845 (Version 5)
Quarter: 2025Q2

REPORT INFORMATION
  Report Type: Spontaneous
  Country: US (occurrence: US)
  Receive Date: 20250320
  Receipt Date: 20250428
  Transmission Date: 20250716
  Serious: Yes (Other)
  Sender: BAUSCH AND LOMB
  Company Number: US-MLMSERVICE-20250311-PI439718-00152-3

PATIENT
  Age: 79 Year
  Sex: Female
  Weight: 64.8 kg

DRUGS (2)
  1. EFUDEX [Suspect]
     Active Substance: FLUOROURACIL
     Indication: Squamous cell carcinoma
     Dosage: CHEMOWRAPS ON LOWER EXTREMITIES
     Route: 061
     Dates: start: 20200127, end: 20200224
  2. EFUDEX [Suspect]
     Active Substance: FLUOROURACIL
     Indication: Actinic keratosis

REACTIONS (3)
  - Paradoxical drug reaction [Recovered/Resolved]
  - Disease progression [Recovered/Resolved]
  - Squamous cell carcinoma of skin [Recovered/Resolved]
